FAERS Safety Report 7722969-X (Version None)
Quarter: 2011Q3

REPORT INFORMATION
  Report Type: 
  Country: None (occurrence: None)
  Receive Date: 20110901
  Receipt Date: 20110826
  Transmission Date: 20111222
  Serious: Yes (Hospitalization)
  Sender: FDA-Public Use
  Company Number: US-AMGEN-USASP2011044267

PATIENT
  Age: 82 Year
  Sex: Male

DRUGS (12)
  1. ZOCOR [Concomitant]
  2. TENORMIN [Concomitant]
  3. OMEPRAZOLE [Concomitant]
  4. NEULASTA [Suspect]
     Indication: NEUTROPENIA
     Dates: start: 20110201
  5. FERROUS SULFATE TAB [Concomitant]
  6. NITROGLYCERIN [Concomitant]
  7. TYLENOL (CAPLET) [Concomitant]
  8. COMPAZINE [Concomitant]
  9. XELODA [Concomitant]
     Indication: GASTROOESOPHAGEAL CANCER
  10. CAMPTOSAR [Concomitant]
  11. LEUKOVORIN [Concomitant]
  12. FLUOROURACIL [Concomitant]
     Indication: GASTROOESOPHAGEAL CANCER

REACTIONS (4)
  - NEUTROPENIA [None]
  - DRUG INTERACTION [None]
  - PNEUMONIA [None]
  - PYREXIA [None]
